FAERS Safety Report 7065837-1 (Version None)
Quarter: 2010Q4

REPORT INFORMATION
  Report Type: 
  Country: None (occurrence: None)
  Receive Date: 20101027
  Receipt Date: 20101018
  Transmission Date: 20110411
  Serious: Yes (Hospitalization)
  Sender: FDA-Public Use
  Company Number: KR-ABBOTT-10P-090-0679244-00

PATIENT
  Age: 49 Year
  Sex: Male

DRUGS (10)
  1. HUMIRA [Suspect]
     Indication: PSORIATIC ARTHROPATHY
     Dates: start: 20100525, end: 20100803
  2. ANTI-INFLAMMATORY DRUG [Concomitant]
     Indication: PRODUCT USED FOR UNKNOWN INDICATION
  3. ISONIAZID [Concomitant]
     Indication: LATENT TUBERCULOSIS
     Route: 048
     Dates: start: 20100504, end: 20100804
  4. SOLETON [Concomitant]
     Indication: ARTHRITIS
     Route: 048
     Dates: start: 20090903, end: 20101012
  5. MUCOSTA [Concomitant]
     Indication: GASTRIC ULCER
     Route: 048
     Dates: start: 20090903, end: 20101012
  6. SOLONDO [Concomitant]
     Indication: RHEUMATOID ARTHRITIS
     Route: 048
     Dates: start: 20090903, end: 20101012
  7. FOLIC ACID [Concomitant]
     Indication: ADVERSE DRUG REACTION
     Route: 048
     Dates: start: 20090903, end: 20101012
  8. METHOTREXATE [Concomitant]
     Indication: PSORIATIC ARTHROPATHY
     Route: 048
     Dates: start: 20100210, end: 20100803
  9. ACTONEL [Concomitant]
     Indication: OSTEOPOROSIS
     Route: 048
     Dates: start: 20090917, end: 20101009
  10. ADCAL [Concomitant]
     Indication: OSTEOPOROSIS
     Route: 048
     Dates: start: 20090917, end: 20100504

REACTIONS (5)
  - ACUTE MYELOID LEUKAEMIA [None]
  - ANAEMIA [None]
  - GASTRIC ULCER [None]
  - HAEMOGLOBIN DECREASED [None]
  - INTESTINAL ULCER [None]
